FAERS Safety Report 12213672 (Version 2)
Quarter: 2016Q2

REPORT INFORMATION
  Report Type: Report from Study
  Country: US (occurrence: US)
  Receive Date: 20160328
  Receipt Date: 20160516
  Transmission Date: 20160815
  Serious: Yes (Other)
  Sender: FDA-Public Use
  Company Number: US-MALLINCKRODT-T201505203

PATIENT
  Age: 56 Year
  Sex: Female

DRUGS (6)
  1. REPOSITORY CORTICOTROPIN INJECTION [Suspect]
     Active Substance: CORTICOTROPIN
     Dosage: 80 UNITS TWICE WEEKLY
     Route: 058
     Dates: start: 201511, end: 201511
  2. REPOSITORY CORTICOTROPIN INJECTION [Suspect]
     Active Substance: CORTICOTROPIN
     Dosage: 80 UNITS THREE TIMES WKLY
     Route: 058
     Dates: start: 20160219
  3. REPOSITORY CORTICOTROPIN INJECTION [Suspect]
     Active Substance: CORTICOTROPIN
     Dosage: 80 UNITS M/W/F
     Route: 058
     Dates: start: 201511, end: 201511
  4. REPOSITORY CORTICOTROPIN INJECTION [Suspect]
     Active Substance: CORTICOTROPIN
     Dosage: 70 UNITS (MWF), 40 UNITS (SUNDAY)
     Route: 058
     Dates: start: 20151129, end: 2015
  5. REPOSITORY CORTICOTROPIN INJECTION [Suspect]
     Active Substance: CORTICOTROPIN
     Dosage: 70 UNITS THREE TIMES WKLY
     Route: 058
     Dates: start: 2015, end: 201602
  6. REPOSITORY CORTICOTROPIN INJECTION [Suspect]
     Active Substance: CORTICOTROPIN
     Indication: SARCOIDOSIS
     Dosage: 80 UNITS EVERY DAY
     Route: 058
     Dates: start: 20151024, end: 20151105

REACTIONS (7)
  - Palpitations [Recovering/Resolving]
  - Contusion [Recovered/Resolved]
  - Injection site pain [Recovering/Resolving]
  - Mood altered [Recovering/Resolving]
  - Blood pressure increased [Recovering/Resolving]
  - Arthropod bite [Not Recovered/Not Resolved]
  - Sluggishness [Not Recovered/Not Resolved]

NARRATIVE: CASE EVENT DATE: 20151024
